FAERS Safety Report 5619468-8 (Version None)
Quarter: 2008Q1

REPORT INFORMATION
  Report Type: 
  Country: None (occurrence: None)
  Receive Date: 20080109
  Receipt Date: 20070501
  Transmission Date: 20080703
  Serious: Yes (Other)
  Sender: FDA-Public Use
  Company Number: WAES 0705USA00201

PATIENT
  Age: 55 Year
  Sex: Male
  Weight: 95.709 kg

DRUGS (5)
  1. ZETIA [Suspect]
     Indication: HYPERLIPIDAEMIA
     Dosage: 10 MG/DAILY/PO
     Route: 048
     Dates: start: 20070119, end: 20070424
  2. PRINIVIL [Concomitant]
  3. ATENOLOL [Concomitant]
  4. IBUPROFEN [Concomitant]
  5. VENLAFAXINE HYDROCHLORIDE [Concomitant]

REACTIONS (1)
  - RHABDOMYOLYSIS [None]
